FAERS Safety Report 5269435-1 (Version None)
Quarter: 2007Q2

REPORT INFORMATION
  Report Type: 
  Country: None (occurrence: None)
  Receive Date: 20070316
  Receipt Date: 20070316
  Transmission Date: 20071010
  Serious: Yes (Hospitalization)
  Sender: FDA-Public Use
  Company Number: None

PATIENT
  Sex: Male
  Weight: 78.9259 kg

DRUGS (7)
  1. IMATINIB MESYLATE [Suspect]
     Indication: METASTATIC RENAL CELL CARCINOMA
     Dosage: 600 MG, QD, ORAL
     Route: 048
     Dates: start: 20070307, end: 20070310
  2. RAD001 - NOVARTIS [Suspect]
     Indication: METASTATIC RENAL CELL CARCINOMA
     Dosage: 2.5 MG, QD, ORAL
     Route: 048
     Dates: start: 20070307, end: 20070310
  3. CITALOPRAM HYDROBROMIDE [Concomitant]
  4. FERROUS GLUCONATE [Concomitant]
  5. LOVENOX [Concomitant]
  6. VICODIN [Concomitant]
  7. LOMOTIL [Concomitant]

REACTIONS (1)
  - DIVERTICULITIS [None]
